FAERS Safety Report 10096808 (Version 1)
Quarter: 2014Q2

REPORT INFORMATION
  Report Type: Spontaneous
  Country: IN (occurrence: IN)
  Receive Date: 20140422
  Receipt Date: 20140422
  Transmission Date: 20141212
  Serious: Yes (Life-Threatening, Hospitalization)
  Sender: FDA-Public Use
  Company Number: IN-MYLANLABS-2014S1008608

PATIENT
  Age: 28 Year
  Sex: Female

DRUGS (2)
  1. AMLODIPINE [Suspect]
     Indication: OFF LABEL USE
     Dosage: 50 TABLETS OF 5MG STRENGTH
     Route: 048
  2. AMLODIPINE [Suspect]
     Indication: OVERDOSE
     Dosage: 50 TABLETS OF 5MG STRENGTH
     Route: 048

REACTIONS (9)
  - Toxicity to various agents [Recovered/Resolved]
  - Overdose [Recovered/Resolved]
  - Shock [Recovered/Resolved]
  - Capillary leak syndrome [Unknown]
  - Renal failure acute [Recovering/Resolving]
  - Abdominal pain [Unknown]
  - Vomiting [Unknown]
  - Dizziness [Unknown]
  - Dyspnoea [Unknown]
